FAERS Safety Report 7316010-0 (Version None)
Quarter: 2011Q1

REPORT INFORMATION
  Report Type: 
  Country: None (occurrence: None)
  Receive Date: 20110225
  Receipt Date: 20110217
  Transmission Date: 20110831
  Serious: Yes (Hospitalization)
  Sender: FDA-Public Use
  Company Number: PHHO2010IT11907

PATIENT
  Sex: Male
  Weight: 73 kg

DRUGS (8)
  1. PLACEBO [Suspect]
     Indication: PANCREATIC NEUROENDOCRINE TUMOUR
     Dosage: DOUBLE BLIND
     Route: 048
     Dates: start: 20090401
  2. TESTOVIRON [Concomitant]
     Indication: PITUITARY TUMOUR BENIGN
  3. RAD 666 [Suspect]
     Indication: PANCREATIC NEUROENDOCRINE TUMOUR
     Dosage: 10 MG, QD
     Route: 048
     Dates: start: 20100623, end: 20100801
  4. CREON [Concomitant]
     Indication: ABDOMINAL PAIN UPPER
  5. LANSOPRAZOLE [Concomitant]
     Indication: PROPHYLAXIS
  6. DOSTINEX [Concomitant]
     Indication: HYPERPROLACTINAEMIA
  7. LANREOTIDE [Concomitant]
     Indication: ACROMEGALY
  8. RAD 666 [Suspect]
     Dosage: 5 MG, QD
     Route: 048
     Dates: start: 20100805

REACTIONS (2)
  - HYPERGLYCAEMIA [None]
  - DIABETES MELLITUS [None]
